FAERS Safety Report 9337717 (Version 2)
Quarter: 2013Q3

REPORT INFORMATION
  Report Type: Spontaneous
  Country: IT (occurrence: IT)
  Receive Date: 20130607
  Receipt Date: 20130716
  Transmission Date: 20140515
  Serious: Yes (Other)
  Sender: FDA-Public Use
  Company Number: IT-UCBSA-087334

PATIENT
  Age: 23 Year
  Sex: Female

DRUGS (2)
  1. CIMZIA [Suspect]
     Indication: RHEUMATOID ARTHRITIS
     Route: 058
     Dates: start: 20120906, end: 20130516
  2. DICLOREUM [Concomitant]
     Dosage: DOSE: 150 MG PROLONGED RELEASE 20 CAPSULE

REACTIONS (1)
  - Psoriasis [Not Recovered/Not Resolved]
